FAERS Safety Report 17802230 (Version 1)
Quarter: 2020Q2

REPORT INFORMATION
  Report Type: Spontaneous
  Country: US (occurrence: US)
  Receive Date: 20200518
  Receipt Date: 20200518
  Transmission Date: 20200714
  Serious: No
  Sender: FDA-Public Use
  Company Number: None

PATIENT
  Sex: Female

DRUGS (1)
  1. OXYBUTYNIN CL ER TABS 5MG [Suspect]
     Active Substance: OXYBUTYNIN CHLORIDE

REACTIONS (1)
  - Therapy non-responder [None]
